FAERS Safety Report 17675923 (Version 2)
Quarter: 2020Q4

REPORT INFORMATION
  Report Type: Spontaneous
  Country: US (occurrence: US)
  Receive Date: 20200416
  Receipt Date: 20201208
  Transmission Date: 20210113
  Serious: Yes (Other)
  Sender: FDA-Public Use
  Company Number: US-ASTRAZENECA-2018SF48012

PATIENT
  Age: 628 Month
  Sex: Female
  Weight: 72.1 kg

DRUGS (14)
  1. IPRATROPIUM BROMIDE. [Concomitant]
     Active Substance: IPRATROPIUM BROMIDE
     Route: 065
     Dates: start: 20141103
  2. VOLTAREN [Concomitant]
     Active Substance: DICLOFENAC SODIUM
     Route: 065
     Dates: start: 20141230
  3. NEXIUM [Suspect]
     Active Substance: ESOMEPRAZOLE MAGNESIUM
     Indication: DYSPEPSIA
     Route: 048
     Dates: start: 2006, end: 2016
  4. LORTAB [Concomitant]
     Active Substance: ACETAMINOPHEN\HYDROCODONE BITARTRATE
     Indication: PAIN
     Route: 065
     Dates: start: 20140805
  5. SOMA [Concomitant]
     Active Substance: CARISOPRODOL
     Indication: PAIN
     Route: 065
     Dates: start: 20141113
  6. NEXIUM [Suspect]
     Active Substance: ESOMEPRAZOLE MAGNESIUM
     Indication: DYSPEPSIA
     Route: 048
     Dates: start: 20150218
  7. TRAMADOL HYDROCHLORIDE. [Concomitant]
     Active Substance: TRAMADOL HYDROCHLORIDE
     Route: 065
     Dates: start: 20141006
  8. ALBUTEROL. [Concomitant]
     Active Substance: ALBUTEROL
     Route: 065
     Dates: start: 20141103
  9. AZITHROMYCIN ANHYDROUS. [Concomitant]
     Active Substance: AZITHROMYCIN ANHYDROUS
     Route: 065
     Dates: start: 20141103
  10. NEXIUM [Suspect]
     Active Substance: ESOMEPRAZOLE MAGNESIUM
     Indication: DYSPEPSIA
     Dosage: GENERIC
     Route: 065
     Dates: start: 2016
  11. LYRICA [Concomitant]
     Active Substance: PREGABALIN
     Indication: PAIN
     Route: 065
     Dates: start: 20150409
  12. AMBIEN [Concomitant]
     Active Substance: ZOLPIDEM TARTRATE
     Indication: PAIN
     Route: 065
     Dates: start: 20141212
  13. LIMBREL [Concomitant]
     Active Substance: DIETARY SUPPLEMENT\FLAVOCOXID
     Route: 065
     Dates: start: 20150410
  14. TYLENOL [Concomitant]
     Active Substance: ACETAMINOPHEN
     Route: 065
     Dates: start: 20151109

REACTIONS (3)
  - Chronic kidney disease [Not Recovered/Not Resolved]
  - Rebound acid hypersecretion [Unknown]
  - Renal failure [Unknown]

NARRATIVE: CASE EVENT DATE: 201509
